FAERS Safety Report 8331593-X (Version None)
Quarter: 2012Q2

REPORT INFORMATION
  Report Type: 
  Country: None (occurrence: None)
  Receive Date: 20120502
  Receipt Date: 20120419
  Transmission Date: 20120825
  Serious: No
  Sender: FDA-Public Use
  Company Number: US-AMGEN-USASP2012025113

PATIENT
  Age: 34 Year
  Sex: Male

DRUGS (7)
  1. SULINDAC [Concomitant]
     Dosage: 1 MG, UNK
  2. GLUCOSAMINE [Concomitant]
     Dosage: UNK
  3. CHONDROITIN [Concomitant]
     Dosage: UNK
  4. MULTI-VITAMINS [Concomitant]
     Dosage: UNK
  5. PREDNISONE [Concomitant]
     Dosage: UNK
  6. ENBREL [Suspect]
     Indication: PSORIATIC ARTHROPATHY
     Dosage: 50 MG, QWK
     Dates: start: 20120201
  7. OMEGA 3                            /06852001/ [Concomitant]
     Dosage: UNK

REACTIONS (2)
  - FATIGUE [None]
  - THERAPEUTIC RESPONSE DECREASED [None]
